FAERS Safety Report 6553448-3 (Version None)
Quarter: 2010Q1

REPORT INFORMATION
  Report Type: 
  Country: None (occurrence: None)
  Receive Date: 20100122
  Receipt Date: 20100106
  Transmission Date: 20100710
  Serious: Yes (Hospitalization)
  Sender: FDA-Public Use
  Company Number: 2010AC000044

PATIENT
  Age: 79 Year
  Sex: Male

DRUGS (21)
  1. DIGOXIN [Suspect]
     Dosage: .25 MG;QD;PO
     Route: 048
  2. WARFARIN SODIUM [Concomitant]
  3. LABETALOL HCL [Concomitant]
  4. COZAAR [Concomitant]
  5. VIOXX [Concomitant]
  6. NITROGLYCERIN [Concomitant]
  7. NIACIN [Concomitant]
  8. FUROSEMIDE [Concomitant]
  9. NORVASC [Concomitant]
  10. OMEPRAZOLE [Concomitant]
  11. AUGMENTIN [Concomitant]
  12. VICODIN [Concomitant]
  13. COLACE [Concomitant]
  14. LOSARTAN POTASSIUM [Concomitant]
  15. ASCORBIC ACID [Concomitant]
  16. PROTONIX [Concomitant]
  17. K-DUR [Concomitant]
  18. PROSCAR [Concomitant]
  19. ATORVASTATIN [Concomitant]
  20. FERROUS SULFATE TAB [Concomitant]
  21. FUROSEMIDE [Concomitant]

REACTIONS (11)
  - ACUTE MYOCARDIAL INFARCTION [None]
  - CHEST DISCOMFORT [None]
  - CHEST PAIN [None]
  - DYSPEPSIA [None]
  - ECONOMIC PROBLEM [None]
  - ELECTROCARDIOGRAM CHANGE [None]
  - EMOTIONAL DISORDER [None]
  - MULTIPLE INJURIES [None]
  - MYOCARDIAL ISCHAEMIA [None]
  - POSTOPERATIVE WOUND INFECTION [None]
  - WOUND INFECTION STAPHYLOCOCCAL [None]
